FAERS Safety Report 12375604 (Version 1)
Quarter: 2016Q2

REPORT INFORMATION
  Report Type: Spontaneous
  Country: US (occurrence: None)
  Receive Date: 20160516
  Receipt Date: 20160516
  Transmission Date: 20160815
  Serious: Yes (Other)
  Sender: FDA-Public Use
  Company Number: None

PATIENT
  Age: 64 Year
  Sex: Female
  Weight: 86.18 kg

DRUGS (4)
  1. LEVOFLOXACIN. [Suspect]
     Active Substance: LEVOFLOXACIN
     Indication: PNEUMONIA
     Dosage: 10 TABLET(S) ONCE A DAY TAKEN BY MOUTH
     Route: 048
     Dates: start: 20160316, end: 20160325
  2. L THYROXINE [Concomitant]
     Active Substance: LEVOTHYROXINE SODIUM
  3. HYDORCODONE APAP [Concomitant]
  4. ASA [Concomitant]
     Active Substance: ASPIRIN

REACTIONS (4)
  - Mass [None]
  - Tendon pain [None]
  - Pain in extremity [None]
  - Tendon disorder [None]

NARRATIVE: CASE EVENT DATE: 20160326
